FAERS Safety Report 6302317-2 (Version None)
Quarter: 2009Q3

REPORT INFORMATION
  Report Type: 
  Country: None (occurrence: None)
  Receive Date: 20090810
  Receipt Date: 20090806
  Transmission Date: 20100115
  Serious: Yes (Hospitalization)
  Sender: FDA-Public Use
  Company Number: DE-WYE-G03746209

PATIENT
  Sex: Female
  Weight: 75 kg

DRUGS (6)
  1. TREVILOR RETARD [Suspect]
     Dosage: 1 CAPSULE (OVERDOSE AMOUNT 150MG)
     Route: 048
     Dates: start: 20090526, end: 20090526
  2. OMEPRAZOLE [Suspect]
     Dosage: OVERDOSE AMOUNT UNKNOWN
     Route: 048
     Dates: start: 20090526, end: 20090526
  3. DIPHENHYDRAMINE HCL [Suspect]
     Dosage: OVERDOSE AMOUNT UNKNOWN
     Route: 048
     Dates: start: 20090526, end: 20090526
  4. DOXEPIN HCL [Suspect]
     Dosage: 9 TABLETS (OVERDOSE AMOUNT 450MG)
     Route: 048
     Dates: start: 20090526, end: 20090526
  5. ETHANOL [Suspect]
     Dosage: OVERDOSE AMOUNT UNKNOWN
     Route: 048
     Dates: start: 20090526, end: 20090526
  6. CAMPRAL [Suspect]
     Dosage: 6 TABLETS (OVERDOSE AMOUNT 999MG)
     Route: 048
     Dates: start: 20090526, end: 20090526

REACTIONS (3)
  - ALCOHOL POISONING [None]
  - INTENTIONAL OVERDOSE [None]
  - SUICIDE ATTEMPT [None]
